FAERS Safety Report 14942679 (Version 1)
Quarter: 2018Q2

REPORT INFORMATION
  Report Type: Spontaneous
  Country: BR (occurrence: BR)
  Receive Date: 20180528
  Receipt Date: 20180528
  Transmission Date: 20180711
  Serious: Yes (Other)
  Sender: FDA-Public Use
  Company Number: BR-AMGEN-BRASP2018070604

PATIENT
  Age: 67 Year
  Sex: Female

DRUGS (3)
  1. GRANULOKINE [Suspect]
     Active Substance: FILGRASTIM
     Indication: PRODUCT USED FOR UNKNOWN INDICATION
     Dosage: UNK
     Route: 065
  2. XELODA [Suspect]
     Active Substance: CAPECITABINE
     Indication: PROPHYLAXIS
     Dosage: 500 MG, TID (THREE TABLETS A DAY, ONE IN MORNING AND TWO AT NIGHT)
     Route: 065
  3. XELODA [Suspect]
     Active Substance: CAPECITABINE
     Indication: COLORECTAL CANCER

REACTIONS (6)
  - Chromaturia [Unknown]
  - Decreased appetite [Unknown]
  - Peripheral swelling [Unknown]
  - Carcinoembryonic antigen increased [Unknown]
  - Weight decreased [Unknown]
  - Erythema [Unknown]
